FAERS Safety Report 9280211 (Version 3)
Quarter: 2013Q3

REPORT INFORMATION
  Report Type: Spontaneous
  Country: GB (occurrence: GB)
  Receive Date: 20130509
  Receipt Date: 20130905
  Transmission Date: 20140515
  Serious: Yes (Death)
  Sender: FDA-Public Use
  Company Number: GB-JNJFOC-20130418033

PATIENT
  Age: 90 Year
  Sex: Female

DRUGS (2)
  1. PALEXIA SR [Suspect]
     Indication: NEURALGIA
     Route: 048
     Dates: start: 2011
  2. PALEXIA [Suspect]
     Indication: NEURALGIA
     Route: 048
     Dates: start: 2011

REACTIONS (1)
  - Death [Fatal]
